FAERS Safety Report 25117336 (Version 3)
Quarter: 2025Q2

REPORT INFORMATION
  Report Type: Report from Study
  Country: DE (occurrence: DE)
  Receive Date: 20250325
  Receipt Date: 20250528
  Transmission Date: 20250717
  Serious: Yes (Other)
  Sender: EMD SERONO INC
  Company Number: DE-Merck Healthcare KGaA-2025005304

PATIENT
  Age: 40 Year
  Sex: Female

DRUGS (4)
  1. REBIF [Suspect]
     Active Substance: INTERFERON BETA-1A
     Indication: Multiple sclerosis
     Dates: start: 2016, end: 202409
  2. REBIF [Suspect]
     Active Substance: INTERFERON BETA-1A
  3. VITAMIN B12 [Concomitant]
     Active Substance: CYANOCOBALAMIN
     Indication: Product used for unknown indication
  4. DESMIN [DESLORATADINE] [Concomitant]
     Indication: Product used for unknown indication

REACTIONS (5)
  - Hydrocholecystis [Unknown]
  - Cholelithiasis [Unknown]
  - Cholecystitis acute [Unknown]
  - Incorrect dose administered by device [Recovered/Resolved]
  - Device issue [Recovered/Resolved]

NARRATIVE: CASE EVENT DATE: 20240101
